FAERS Safety Report 5608227-8 (Version None)
Quarter: 2008Q1

REPORT INFORMATION
  Report Type: 
  Country: None (occurrence: None)
  Receive Date: 20080125
  Receipt Date: 20080114
  Transmission Date: 20080703
  Serious: Yes (Other)
  Sender: FDA-Public Use
  Company Number: JPI-P-002892

PATIENT
  Age: 41 Year
  Sex: Male

DRUGS (3)
  1. XYREM [Suspect]
     Indication: FIBROMYALGIA
     Dosage: SEE IMAGE
     Route: 048
     Dates: start: 20071227, end: 20071231
  2. XYREM [Suspect]
     Indication: FIBROMYALGIA
     Dosage: SEE IMAGE
     Route: 048
     Dates: start: 20080115
  3. MARIJUANA (CANNABIS SATIVA) [Concomitant]

REACTIONS (8)
  - ABDOMINAL PAIN UPPER [None]
  - DRUG ABUSE [None]
  - DRUG INEFFECTIVE [None]
  - DYSPEPSIA [None]
  - HAEMATEMESIS [None]
  - NAUSEA [None]
  - SLEEP DISORDER [None]
  - VOMITING [None]
